FAERS Safety Report 24990229 (Version 2)
Quarter: 2025Q3

REPORT INFORMATION
  Report Type: Report from Study
  Country: US (occurrence: US)
  Receive Date: 20250220
  Receipt Date: 20250803
  Transmission Date: 20251021
  Serious: Yes (Other)
  Sender: ALEXION PHARMACEUTICALS
  Company Number: US-AstraZeneca-CH-00807042A

PATIENT
  Sex: Male
  Weight: 61.2 kg

DRUGS (1)
  1. OLAPARIB [Suspect]
     Active Substance: OLAPARIB
     Indication: Prostate cancer
     Dosage: 100 MILLIGRAM, BID
     Dates: start: 20250115

REACTIONS (2)
  - Renal impairment [Unknown]
  - Malaise [Unknown]
